FAERS Safety Report 8267740-8 (Version None)
Quarter: 2012Q2

REPORT INFORMATION
  Report Type: 
  Country: None (occurrence: None)
  Receive Date: 20120409
  Receipt Date: 20120327
  Transmission Date: 20120825
  Serious: Yes (Hospitalization, Other)
  Sender: FDA-Public Use
  Company Number: JP-RANBAXY-2012RR-54815

PATIENT
  Age: 55 Year
  Sex: Female

DRUGS (2)
  1. AMLODIPINE [Suspect]
     Indication: SUICIDE ATTEMPT
     Dosage: 140 MG, UNK
     Route: 065
  2. OLMESARTAN MEDOXOMIL [Suspect]
     Indication: SUICIDE ATTEMPT
     Dosage: 180 MG, UNK
     Route: 065

REACTIONS (2)
  - INTENTIONAL OVERDOSE [None]
  - HYPOTENSION [None]
